FAERS Safety Report 24884280 (Version 1)
Quarter: 2025Q1

REPORT INFORMATION
  Report Type: Spontaneous
  Country: US (occurrence: US)
  Receive Date: 20250124
  Receipt Date: 20250124
  Transmission Date: 20250409
  Serious: No
  Sender: LEXICON PHARMACEUTICALS
  Company Number: US-LEX-000619

PATIENT
  Age: 81 Year
  Sex: Female

DRUGS (1)
  1. INPEFA [Suspect]
     Active Substance: SOTAGLIFLOZIN
     Indication: Cardiac disorder
     Route: 048
     Dates: start: 202410, end: 20241221

REACTIONS (7)
  - Abdominal pain [Unknown]
  - Vomiting [Unknown]
  - Fall [Unknown]
  - Nausea [Unknown]
  - Swelling [Unknown]
  - Dizziness [Recovered/Resolved]
  - Paraesthesia [Unknown]

NARRATIVE: CASE EVENT DATE: 20240101
